FAERS Safety Report 4275545-8 (Version None)
Quarter: 2004Q1

REPORT INFORMATION
  Report Type: 
  Country: None (occurrence: None)
  Receive Date: 20040121
  Receipt Date: 20020916
  Transmission Date: 20041129
  Serious: Yes (Hospitalization)
  Sender: FDA-Public Use
  Company Number: US-BRISTOL-MYERS SQUIBB COMPANY-12039780

PATIENT
  Age: 77 Year
  Sex: Female

DRUGS (8)
  1. GATIFLOXACIN [Suspect]
     Route: 048
     Dates: start: 20010312, end: 20010326
  2. ATORVASTATIN [Suspect]
     Route: 048
     Dates: start: 20010212, end: 20010326
  3. METOPROLOL TARTRATE [Suspect]
     Dosage: PREVIOUSLY ON 50MG DAILY FROM JAN-2002 UNTIL 02-JUN-2002
     Route: 048
     Dates: start: 20010101
  4. ASPIRIN [Concomitant]
     Route: 048
     Dates: start: 20010101
  5. ALTACE [Concomitant]
     Route: 048
     Dates: start: 20010801
  6. LIPITOR [Concomitant]
     Route: 048
     Dates: start: 20010418
  7. HYDROCHLOROTHIAZIDE [Concomitant]
     Route: 048
     Dates: start: 20020601
  8. NORVASC [Concomitant]
     Route: 048
     Dates: start: 20020605

REACTIONS (3)
  - CHEST PAIN [None]
  - DYSPNOEA [None]
  - PALPITATIONS [None]
